FAERS Safety Report 5754702-5 (Version None)
Quarter: 2008Q2

REPORT INFORMATION
  Report Type: 
  Country: None (occurrence: None)
  Receive Date: 20080527
  Receipt Date: 20080506
  Transmission Date: 20081010
  Serious: Yes (Death)
  Sender: FDA-Public Use
  Company Number: 2008AL003551

PATIENT
  Age: 63 Year
  Sex: Male

DRUGS (7)
  1. DIGOXIN [Suspect]
     Dosage: 0.25MG DAILY PO
     Route: 048
  2. FUROSEMIDE [Concomitant]
  3. LORAZEPAM [Concomitant]
  4. FAMOTIDINE [Concomitant]
  5. KLOR-CON [Concomitant]
  6. ZOCOR [Concomitant]
  7. ZOLOFT [Concomitant]

REACTIONS (5)
  - ANXIETY [None]
  - DIZZINESS [None]
  - FLUID RETENTION [None]
  - LETHARGY [None]
  - VOMITING [None]
